FAERS Safety Report 18669723 (Version 1)
Quarter: 2020Q4

REPORT INFORMATION
  Report Type: Spontaneous
  Country: CA (occurrence: CA)
  Receive Date: 20201228
  Receipt Date: 20201228
  Transmission Date: 20210114
  Serious: Yes (Other)
  Sender: FDA-Public Use
  Company Number: CA-PFIZER INC-2020512205

PATIENT
  Age: 81 Year
  Sex: Male

DRUGS (1)
  1. ADVIL [Suspect]
     Active Substance: IBUPROFEN
     Indication: HEADACHE
     Dosage: 2 DF
     Dates: start: 20201222

REACTIONS (4)
  - Expired product administered [Unknown]
  - Retching [Unknown]
  - Extra dose administered [Unknown]
  - Foreign body in throat [Unknown]

NARRATIVE: CASE EVENT DATE: 20201222
